FAERS Safety Report 23350200 (Version 1)
Quarter: 2023Q4

REPORT INFORMATION
  Report Type: Spontaneous
  Country: US (occurrence: None)
  Receive Date: 20231228
  Receipt Date: 20231228
  Transmission Date: 20240110
  Serious: No
  Sender: FDA-Public Use
  Company Number: None

PATIENT
  Sex: Female

DRUGS (1)
  1. AUBAGIO [Suspect]
     Active Substance: TERIFLUNOMIDE
     Indication: Multiple sclerosis
     Dosage: 14MG EVERY DAY BY MOUTH?
     Route: 048
     Dates: start: 201609

REACTIONS (6)
  - Multiple sclerosis relapse [None]
  - Muscle spasms [None]
  - Muscle spasms [None]
  - Seizure [None]
  - Dysarthria [None]
  - Posture abnormal [None]
